FAERS Safety Report 23898325 (Version 1)
Quarter: 2024Q2

REPORT INFORMATION
  Report Type: Spontaneous
  Country: CA (occurrence: CA)
  Receive Date: 20240524
  Receipt Date: 20240524
  Transmission Date: 20240716
  Serious: Yes (Other)
  Sender: FDA-Public Use
  Company Number: CA-BEH-2024172593

PATIENT
  Age: 38 Year
  Sex: Female

DRUGS (2)
  1. PRIVIGEN [Suspect]
     Active Substance: HUMAN IMMUNOGLOBULIN G
     Indication: Radiculopathy
     Dosage: 50 G, QMT
     Route: 042
  2. COVID-19 vaccine [Concomitant]

REACTIONS (4)
  - Chest pain [Unknown]
  - Headache [Unknown]
  - Myalgia [Unknown]
  - Off label use [Unknown]
